FAERS Safety Report 13814462 (Version 1)
Quarter: 2017Q3

REPORT INFORMATION
  Report Type: Spontaneous
  Country: US (occurrence: US)
  Receive Date: 20170731
  Receipt Date: 20170731
  Transmission Date: 20171127
  Serious: Yes (Hospitalization)
  Sender: FDA-Public Use
  Company Number: US-BAYER-2017-138991

PATIENT
  Age: 67 Year
  Sex: Female

DRUGS (1)
  1. STIVARGA [Suspect]
     Active Substance: REGORAFENIB
     Indication: COLON CANCER METASTATIC
     Dosage: 40 MG, 3 TABLETS, DAILY
     Route: 048
     Dates: start: 20170518, end: 20170522

REACTIONS (8)
  - Mesenteric panniculitis [Recovered/Resolved]
  - Off label use [None]
  - Blood pressure increased [Recovered/Resolved]
  - Aggression [Recovered/Resolved]
  - Back pain [Recovered/Resolved]
  - Abdominal pain [Recovered/Resolved]
  - Blood glucose increased [Recovered/Resolved]
  - Confusional state [Recovered/Resolved]

NARRATIVE: CASE EVENT DATE: 20170522
